FAERS Safety Report 24525204 (Version 3)
Quarter: 2024Q4

REPORT INFORMATION
  Report Type: Spontaneous
  Country: US (occurrence: US)
  Receive Date: 20241019
  Receipt Date: 20241225
  Transmission Date: 20250115
  Serious: Yes (Other)
  Sender: SANOFI AVENTIS
  Company Number: US-SA-2024SA290585

PATIENT
  Age: 66 Year
  Sex: Female

DRUGS (1)
  1. DUPIXENT [Suspect]
     Active Substance: DUPILUMAB
     Indication: Bronchiectasis
     Dosage: 300 MG, QOW
     Route: 058
     Dates: start: 202402

REACTIONS (4)
  - Bronchiectasis [Recovering/Resolving]
  - Condition aggravated [Recovering/Resolving]
  - Pneumonia [Recovered/Resolved]
  - Product use in unapproved indication [Unknown]

NARRATIVE: CASE EVENT DATE: 20240101
